FAERS Safety Report 6525769-1 (Version None)
Quarter: 2010Q1

REPORT INFORMATION
  Report Type: 
  Country: None (occurrence: None)
  Receive Date: 20100104
  Receipt Date: 20080731
  Transmission Date: 20100710
  Serious: Yes (Other)
  Sender: FDA-Public Use
  Company Number: US-BAYER-200829841NA

PATIENT
  Sex: Female

DRUGS (12)
  1. MAGNEVIST [Suspect]
     Indication: NUCLEAR MAGNETIC RESONANCE IMAGING
  2. OMNISCAN [Suspect]
     Indication: NUCLEAR MAGNETIC RESONANCE IMAGING
  3. OPTIMARK [Suspect]
     Indication: NUCLEAR MAGNETIC RESONANCE IMAGING
  4. MULTIHANCE [Suspect]
     Indication: NUCLEAR MAGNETIC RESONANCE IMAGING
  5. PROHANCE [Suspect]
     Indication: NUCLEAR MAGNETIC RESONANCE IMAGING
  6. UNSPECIFIED GADOLINIUM BASED CONTRAST AGENTS [Suspect]
     Indication: NUCLEAR MAGNETIC RESONANCE IMAGING
     Dates: start: 20040408, end: 20040408
  7. UNSPECIFIED GADOLINIUM BASED CONTRAST AGENTS [Suspect]
     Dates: start: 20040430, end: 20040430
  8. UNSPECIFIED GADOLINIUM BASED CONTRAST AGENTS [Suspect]
     Dates: start: 20040629, end: 20040629
  9. UNSPECIFIED GADOLINIUM BASED CONTRAST AGENTS [Suspect]
     Dates: start: 20041026, end: 20041026
  10. UNSPECIFIED GADOLINIUM BASED CONTRAST AGENTS [Suspect]
     Dates: start: 20051108, end: 20051108
  11. UNSPECIFIED GADOLINIUM BASED CONTRAST AGENTS [Suspect]
     Dates: start: 20061114, end: 20061114
  12. UNSPECIFIED GADOLINIUM BASED CONTRAST AGENTS [Suspect]
     Dates: start: 20070724, end: 20070724

REACTIONS (6)
  - ANXIETY [None]
  - EMOTIONAL DISTRESS [None]
  - FIBROSIS [None]
  - INJURY [None]
  - NEPHROGENIC SYSTEMIC FIBROSIS [None]
  - PAIN [None]
